FAERS Safety Report 19074487 (Version 2)
Quarter: 2023Q1

REPORT INFORMATION
  Report Type: Spontaneous
  Country: IT (occurrence: IT)
  Receive Date: 20210330
  Receipt Date: 20230207
  Transmission Date: 20230418
  Serious: Yes (Death, Other)
  Sender: FDA-Public Use
  Company Number: IT-AMGEN-ITASP2021045806

PATIENT
  Sex: Female

DRUGS (4)
  1. FILGRASTIM [Suspect]
     Active Substance: FILGRASTIM
     Indication: Prophylaxis
     Dosage: UNK UNK, AFTER CHEMO
     Route: 065
  2. FLUOROURACIL [Concomitant]
     Active Substance: FLUOROURACIL
     Indication: Breast cancer
     Dosage: 600 MILLIGRAM/SQ. METER, CYCLICAL
     Route: 042
  3. EPIRUBICIN [Concomitant]
     Active Substance: EPIRUBICIN
     Indication: Breast cancer
     Dosage: 60 MILLIGRAM/SQ. METER, CYCLICAL
     Route: 042
  4. CYCLOPHOSPHAMIDE [Concomitant]
     Active Substance: CYCLOPHOSPHAMIDE
     Indication: Breast cancer
     Dosage: 600 MILLIGRAM/SQ. METER, CYCLICAL
     Route: 042

REACTIONS (11)
  - Death [Fatal]
  - Breast cancer [Unknown]
  - Gastrointestinal carcinoma [Unknown]
  - Female reproductive neoplasm [Unknown]
  - Thyroid cancer [Unknown]
  - Skin cancer [Unknown]
  - Lung neoplasm malignant [Unknown]
  - Head and neck cancer [Unknown]
  - Plasma cell myeloma [Unknown]
  - Urinary tract neoplasm [Unknown]
  - Adverse event [Unknown]
